FAERS Safety Report 4475488-0 (Version None)
Quarter: 2004Q4

REPORT INFORMATION
  Report Type: 
  Country: None (occurrence: None)
  Receive Date: 20041015
  Receipt Date: 20041006
  Transmission Date: 20050328
  Serious: Yes (Disabling)
  Sender: FDA-Public Use
  Company Number: US-MERCK-0410USA00624

PATIENT
  Age: 68 Year
  Sex: Female
  Weight: 61 kg

DRUGS (5)
  1. ECOTRIN [Concomitant]
     Route: 065
  2. COREG [Concomitant]
     Route: 065
  3. PLAVIX [Concomitant]
     Route: 065
  4. ALTACE [Concomitant]
     Route: 065
  5. ZOCOR [Suspect]
     Indication: HYPERLIPIDAEMIA
     Route: 048
     Dates: start: 20030606, end: 20040720

REACTIONS (3)
  - CHEST PAIN [None]
  - DYSPNOEA [None]
  - FATIGUE [None]
